FAERS Safety Report 6556370-1 (Version None)
Quarter: 2010Q1

REPORT INFORMATION
  Report Type: 
  Country: None (occurrence: None)
  Receive Date: 20100125
  Receipt Date: 20100112
  Transmission Date: 20100710
  Serious: Yes (Hospitalization)
  Sender: FDA-Public Use
  Company Number: 479951

PATIENT
  Age: 55 Year
  Sex: Female

DRUGS (3)
  1. METHYLPREDNISOLONE [Suspect]
     Indication: ARTHRITIS
     Dosage: 4 MG,; 8 MG
  2. CYCLOSPORINE [Suspect]
     Indication: ARTHRITIS
     Dosage: 150 MG,
     Dates: end: 20030101
  3. METHOTREXATE [Suspect]
     Indication: ARTHRITIS
     Dosage: 5 MG, 1 WEEK, ORAL
     Route: 048
     Dates: start: 20020901, end: 20030101

REACTIONS (3)
  - DYSPHONIA [None]
  - HUMAN HERPESVIRUS 8 INFECTION [None]
  - KAPOSI'S SARCOMA [None]
